FAERS Safety Report 4466865-2 (Version None)
Quarter: 2004Q3

REPORT INFORMATION
  Report Type: 
  Country: None (occurrence: None)
  Receive Date: 20040928
  Receipt Date: 20040928
  Transmission Date: 20050211
  Serious: Yes (Hospitalization)
  Sender: FDA-Public Use
  Company Number: None

PATIENT
  Age: 44 Year
  Sex: Male
  Weight: 60 kg

DRUGS (4)
  1. PACLITAXIEL [Suspect]
     Indication: OESOPHAGEAL CARCINOMA
     Dosage: 50 MG /M2 Q WK
     Dates: start: 20040817, end: 20040831
  2. CISPLATIN [Suspect]
     Indication: OESOPHAGEAL CARCINOMA
     Dosage: 25 MG /M2 Q WK
     Dates: start: 20040817, end: 20040831
  3. HERCEPTIN [Suspect]
     Indication: OESOPHAGEAL CARCINOMA
     Dosage: 40 MG/KG  X ONE
     Dates: start: 20040817
  4. HERCEPTIN [Suspect]
     Indication: OESOPHAGEAL CARCINOMA
     Dosage: 2.0 MG /KG Q WK
     Dates: start: 20040824, end: 20040831

REACTIONS (3)
  - DEHYDRATION [None]
  - OESOPHAGEAL OBSTRUCTION [None]
  - OESOPHAGEAL PAIN [None]
